FAERS Safety Report 25503471 (Version 1)
Quarter: 2025Q3

REPORT INFORMATION
  Report Type: Spontaneous
  Country: IL (occurrence: IL)
  Receive Date: 20250702
  Receipt Date: 20250702
  Transmission Date: 20251020
  Serious: Yes (Other)
  Sender: TEVA
  Company Number: IL-TEVA-VS-3347782

PATIENT

DRUGS (1)
  1. LOSEC [Suspect]
     Active Substance: OMEPRAZOLE
     Indication: Dyspepsia
     Route: 065

REACTIONS (5)
  - Immune system disorder [Unknown]
  - Renal disorder [Unknown]
  - Blood calcium decreased [Unknown]
  - Dyspepsia [Unknown]
  - Adverse event [Unknown]
